FAERS Safety Report 8580437-X (Version None)
Quarter: 2012Q3

REPORT INFORMATION
  Report Type: 
  Country: None (occurrence: None)
  Receive Date: 20120808
  Receipt Date: 20120716
  Transmission Date: 20120928
  Serious: Yes (Other)
  Sender: FDA-Public Use
  Company Number: US-PFIZER INC-2012192135

PATIENT
  Sex: Female

DRUGS (1)
  1. CHANTIX [Suspect]
     Dosage: UNK

REACTIONS (4)
  - VIRAL INFECTION [None]
  - PURULENT DISCHARGE [None]
  - MALAISE [None]
  - SINUSITIS [None]
